FAERS Safety Report 12858847 (Version 1)
Quarter: 2016Q4

REPORT INFORMATION
  Report Type: Spontaneous
  Country: IT (occurrence: IT)
  Receive Date: 20161018
  Receipt Date: 20161018
  Transmission Date: 20170207
  Serious: Yes (Death)
  Sender: FDA-Public Use
  Company Number: IT-MYLANLABS-2016M1043148

PATIENT

DRUGS (2)
  1. CHLORPROMAZINE. [Interacting]
     Active Substance: CHLORPROMAZINE
     Indication: MENTAL DISORDER
     Dosage: UNK
  2. CITALOPRAM [Suspect]
     Active Substance: CITALOPRAM HYDROBROMIDE
     Indication: MENTAL DISORDER
     Dosage: UNK

REACTIONS (4)
  - Arrhythmia [Fatal]
  - Potentiating drug interaction [Fatal]
  - Electrocardiogram QT prolonged [Fatal]
  - Loss of consciousness [Fatal]
